FAERS Safety Report 14412491 (Version 5)
Quarter: 2018Q4

REPORT INFORMATION
  Report Type: Spontaneous
  Country: US (occurrence: US)
  Receive Date: 20180119
  Receipt Date: 20181113
  Transmission Date: 20190204
  Serious: Yes (Hospitalization, Other)
  Sender: FDA-Public Use
  Company Number: US-DSJP-DSU-2017-140558

PATIENT

DRUGS (3)
  1. BENICAR [Suspect]
     Active Substance: OLMESARTAN MEDOXOMIL
     Dosage: 40 MG, UNK
  2. BENICAR [Suspect]
     Active Substance: OLMESARTAN MEDOXOMIL
     Indication: PRODUCT USED FOR UNKNOWN INDICATION
     Dosage: 20 MG, QD
     Route: 048
     Dates: start: 2002
  3. BENICAR [Suspect]
     Active Substance: OLMESARTAN MEDOXOMIL
     Dosage: 20 MG, BID
     Route: 065

REACTIONS (11)
  - Cholecystitis chronic [Recovered/Resolved]
  - Sprue-like enteropathy [Recovered/Resolved]
  - Hiatus hernia [Unknown]
  - Large intestine polyp [Recovered/Resolved]
  - Large intestine polyp [Recovered/Resolved]
  - Diverticulum intestinal [Not Recovered/Not Resolved]
  - Helicobacter test positive [Recovering/Resolving]
  - Gastrointestinal motility disorder [Unknown]
  - Diverticulitis [Recovered/Resolved]
  - Gastrooesophageal reflux disease [Not Recovered/Not Resolved]
  - Haemorrhoids [Unknown]

NARRATIVE: CASE EVENT DATE: 20020701
